FAERS Safety Report 9800195 (Version 1)
Quarter: 2014Q1

REPORT INFORMATION
  Report Type: Spontaneous
  Country: KR (occurrence: KR)
  Receive Date: 20140106
  Receipt Date: 20140106
  Transmission Date: 20141002
  Serious: Yes (Other)
  Sender: FDA-Public Use
  Company Number: PHHY2013KR153766

PATIENT
  Age: 79 Year
  Sex: Female

DRUGS (3)
  1. DONEPEZIL [Suspect]
     Indication: DEMENTIA
     Dosage: 05 MG, UNK
  2. DONEPEZIL [Suspect]
     Dosage: 10 MG, UNK
  3. LEVODOPA [Concomitant]
     Indication: DEMENTIA
     Dosage: 250 MG, BID

REACTIONS (1)
  - Torticollis [Recovered/Resolved]
